FAERS Safety Report 4634843-6 (Version None)
Quarter: 2005Q2

REPORT INFORMATION
  Report Type: 
  Country: None (occurrence: None)
  Receive Date: 20050414
  Receipt Date: 20050404
  Transmission Date: 20051028
  Serious: Yes (Other)
  Sender: FDA-Public Use
  Company Number: US-JNJFOC-20050303576

PATIENT
  Sex: Female
  Weight: 99.79 kg

DRUGS (8)
  1. REMICADE [Suspect]
     Route: 042
  2. REMICADE [Suspect]
     Dosage: 07-NOV-??
     Route: 042
  3. REMICADE [Suspect]
     Indication: RHEUMATOID ARTHRITIS
     Dosage: 07-OCT-??
     Route: 042
  4. TOPROL-XL [Concomitant]
  5. HYDROCHLOROTHIAZIDE [Concomitant]
  6. METHOTREXATE [Concomitant]
  7. FOLATE [Concomitant]
  8. ZOCOR [Concomitant]

REACTIONS (1)
  - DIABETES MELLITUS [None]
